FAERS Safety Report 21805281 (Version 1)
Quarter: 2023Q1

REPORT INFORMATION
  Report Type: Spontaneous
  Country: RO (occurrence: RO)
  Receive Date: 20230102
  Receipt Date: 20230102
  Transmission Date: 20230418
  Serious: Yes (Death, Hospitalization, Other)
  Sender: FDA-Public Use
  Company Number: RO-MYLANLABS-2022M1140648

PATIENT
  Age: 45 Year
  Sex: Female

DRUGS (1)
  1. RITONAVIR [Suspect]
     Active Substance: RITONAVIR
     Indication: Product used for unknown indication
     Dosage: UNK
     Route: 065
     Dates: start: 2016

REACTIONS (3)
  - Metastases to peritoneum [Fatal]
  - Ascites [Fatal]
  - Cholangiocarcinoma [Unknown]
